FAERS Safety Report 17484508 (Version 1)
Quarter: 2020Q1

REPORT INFORMATION
  Report Type: Spontaneous
  Country: FR (occurrence: FR)
  Receive Date: 20200302
  Receipt Date: 20200302
  Transmission Date: 20200409
  Serious: Yes (Other)
  Sender: FDA-Public Use
  Company Number: FR-OTSUKA-2020_005523

PATIENT
  Age: 38 Year
  Sex: Female
  Weight: 89 kg

DRUGS (3)
  1. ABILIFY MAINTENA [Suspect]
     Active Substance: ARIPIPRAZOLE
     Indication: BRIEF PSYCHOTIC DISORDER, WITH POSTPARTUM ONSET
     Dosage: 400 MG, UNK
     Route: 030
     Dates: start: 20191219, end: 20191219
  2. RISPERIDONE. [Suspect]
     Active Substance: RISPERIDONE
     Indication: BRIEF PSYCHOTIC DISORDER, WITH POSTPARTUM ONSET
     Dosage: UNK
     Route: 048
  3. ARIPIPRAZOLE. [Suspect]
     Active Substance: ARIPIPRAZOLE
     Indication: BRIEF PSYCHOTIC DISORDER, WITH POSTPARTUM ONSET
     Dosage: 20 MG, UNK
     Route: 048
     Dates: start: 20191219, end: 20191220

REACTIONS (4)
  - Rosacea [Recovered/Resolved]
  - Rash [Recovered/Resolved]
  - Product use in unapproved indication [Unknown]
  - Localised oedema [Recovered/Resolved]

NARRATIVE: CASE EVENT DATE: 20191220
